FAERS Safety Report 6538824-7 (Version None)
Quarter: 2010Q1

REPORT INFORMATION
  Report Type: 
  Country: None (occurrence: None)
  Receive Date: 20100114
  Receipt Date: 20100114
  Transmission Date: 20100710
  Serious: Yes (Hospitalization)
  Sender: FDA-Public Use
  Company Number: None

PATIENT
  Sex: Female
  Weight: 57 kg

DRUGS (8)
  1. ABRAXANE [Suspect]
     Indication: PANCREATIC CARCINOMA
     Dosage: 154 MG D1 D8 D15/CYCLE 042
     Dates: start: 20091130, end: 20091214
  2. VANDETANIB [Suspect]
     Indication: PANCREATIC CARCINOMA
     Dosage: 300 MG QD 047
     Dates: start: 20091130, end: 20091225
  3. AMLODIPINE [Concomitant]
  4. LANSOPRAZOLE [Concomitant]
  5. SUCRALFATE [Concomitant]
  6. MULTI-VITAMINS [Concomitant]
  7. EMEND [Concomitant]
  8. FOSAMAX [Concomitant]

REACTIONS (3)
  - PAIN [None]
  - RASH PRURITIC [None]
  - THROAT IRRITATION [None]
